FAERS Safety Report 18491913 (Version 1)
Quarter: 2020Q4

REPORT INFORMATION
  Report Type: Report from Study
  Country: DE (occurrence: DE)
  Receive Date: 20201111
  Receipt Date: 20201111
  Transmission Date: 20210114
  Serious: Yes (Other)
  Sender: FDA-Public Use
  Company Number: DE-MYLANLABS-2020M1092733

PATIENT
  Age: 35 Year
  Sex: Female
  Weight: 84 kg

DRUGS (9)
  1. FENISTIL [Concomitant]
     Active Substance: DIMETHINDENE
     Dosage: UNK
     Dates: start: 20191107, end: 20191107
  2. VAGISAN                            /02188201/ [Concomitant]
     Dosage: UNK
     Dates: start: 20200702, end: 20200709
  3. FEMIBION                           /01597501/ [Concomitant]
     Active Substance: CALCIUM PHOSPHATE, DIBASIC, ANHYDROUS\FERROUS SUCCINATE\MAGNESIUM HYDROXIDE
     Dosage: UNK
     Dates: start: 201909, end: 20200105
  4. FEMIBION                           /01597501/ [Concomitant]
     Active Substance: CALCIUM PHOSPHATE, DIBASIC, ANHYDROUS\FERROUS SUCCINATE\MAGNESIUM HYDROXIDE
     Dosage: UNK
     Dates: start: 20200213, end: 20200902
  5. GLATIRAMER [Suspect]
     Active Substance: GLATIRAMER
     Indication: PRODUCT USED FOR UNKNOWN INDICATION
     Dosage: UNK
     Route: 065
  6. OCRELIZUMAB. [Suspect]
     Active Substance: OCRELIZUMAB
     Indication: PRODUCT USED FOR UNKNOWN INDICATION
     Dosage: 600 MILLIGRAM
     Route: 042
     Dates: start: 20191107, end: 20191107
  7. RANITIDINE. [Concomitant]
     Active Substance: RANITIDINE
     Dosage: UNK
     Dates: start: 20191107, end: 20191107
  8. URSOFALK [Concomitant]
     Active Substance: URSODIOL
     Dosage: UNK
     Dates: start: 20200825, end: 20200902
  9. FEMIBION                           /01597501/ [Concomitant]
     Active Substance: CALCIUM PHOSPHATE, DIBASIC, ANHYDROUS\FERROUS SUCCINATE\MAGNESIUM HYDROXIDE
     Dosage: UNK
     Dates: start: 20200106, end: 20200212

REACTIONS (2)
  - Maternal exposure during pregnancy [Unknown]
  - Cholestasis of pregnancy [Recovered/Resolved]

NARRATIVE: CASE EVENT DATE: 20200819
